APPROVED DRUG PRODUCT: VIGAMOX
Active Ingredient: MOXIFLOXACIN HYDROCHLORIDE
Strength: EQ 0.5% BASE
Dosage Form/Route: SOLUTION/DROPS;OPHTHALMIC
Application: N021598 | Product #001 | TE Code: AT1
Applicant: HARROW EYE LLC
Approved: Apr 15, 2003 | RLD: Yes | RS: Yes | Type: RX